FAERS Safety Report 19060761 (Version 1)
Quarter: 2021Q1

REPORT INFORMATION
  Report Type: Spontaneous
  Country: IE (occurrence: IE)
  Receive Date: 20210326
  Receipt Date: 20210326
  Transmission Date: 20210420
  Serious: Yes (Hospitalization, Other)
  Sender: FDA-Public Use
  Company Number: IE-SUN PHARMACEUTICAL INDUSTRIES LTD-2021R1-287631

PATIENT
  Age: 63 Year
  Sex: Male

DRUGS (1)
  1. CLINDAMYCIN. [Suspect]
     Active Substance: CLINDAMYCIN
     Indication: CELLULITIS
     Dosage: UNK
     Route: 048

REACTIONS (2)
  - Staphylococcal scalded skin syndrome [Recovering/Resolving]
  - Toxic epidermal necrolysis [Recovering/Resolving]
